APPROVED DRUG PRODUCT: ZYBAN
Active Ingredient: BUPROPION HYDROCHLORIDE
Strength: 150MG **Federal Register determination that product was not discontinued or withdrawn for safety or effectiveness reasons**
Dosage Form/Route: TABLET, EXTENDED RELEASE;ORAL
Application: N020711 | Product #003
Applicant: GLAXOSMITHKLINE
Approved: May 14, 1997 | RLD: Yes | RS: No | Type: DISCN